FAERS Safety Report 9943128 (Version 1)
Quarter: 2014Q1

REPORT INFORMATION
  Report Type: Spontaneous
  Country: US (occurrence: US)
  Receive Date: 20140303
  Receipt Date: 20140303
  Transmission Date: 20141002
  Serious: Yes (Hospitalization)
  Sender: FDA-Public Use
  Company Number: PHHY2014US024262

PATIENT
  Age: 54 Year
  Sex: Male

DRUGS (5)
  1. DEXAMETHASONE [Suspect]
     Indication: ANTIEMETIC SUPPORTIVE CARE
  2. 5-FLUOROURACIL [Suspect]
     Indication: CHEMOTHERAPY
  3. LEUCOVORIN CALCIUM [Suspect]
     Indication: CHEMOTHERAPY
  4. OXALIPLATIN [Suspect]
     Indication: CHEMOTHERAPY
  5. DEXTROSE [Concomitant]

REACTIONS (4)
  - Metabolic disorder [Unknown]
  - Blood lactic acid increased [Unknown]
  - Hyperglycaemia [Recovering/Resolving]
  - Blood glucose increased [Recovering/Resolving]
